FAERS Safety Report 7108720-5 (Version None)
Quarter: 2010Q4

REPORT INFORMATION
  Report Type: 
  Country: None (occurrence: None)
  Receive Date: 20101117
  Receipt Date: 20101103
  Transmission Date: 20110411
  Serious: Yes (Hospitalization)
  Sender: FDA-Public Use
  Company Number: US-MERCK-1011USA00491

PATIENT
  Age: 63 Year
  Sex: Female

DRUGS (3)
  1. FOSAMAX [Suspect]
     Indication: OSTEOPENIA
     Route: 065
     Dates: end: 20070101
  2. CALCIUM (UNSPECIFIED) [Concomitant]
     Route: 065
  3. MOBIC [Concomitant]
     Route: 065

REACTIONS (2)
  - FEMUR FRACTURE [None]
  - PAIN [None]
